FAERS Safety Report 17739776 (Version 2)
Quarter: 2020Q3

REPORT INFORMATION
  Report Type: Spontaneous
  Country: US (occurrence: US)
  Receive Date: 20200504
  Receipt Date: 20200810
  Transmission Date: 20201102
  Serious: No
  Sender: FDA-Public Use
  Company Number: US-HTU-2020US020447

PATIENT
  Age: 69 Year
  Sex: Male

DRUGS (1)
  1. VALCHLOR [Suspect]
     Active Substance: MECHLORETHAMINE
     Indication: CUTANEOUS T-CELL LYMPHOMA
     Dosage: UNK, QD
     Route: 061
     Dates: start: 20200315

REACTIONS (5)
  - Product administration error [Recovered/Resolved]
  - Application site irritation [Unknown]
  - Application site erythema [Unknown]
  - Product complaint [Unknown]
  - Application site discolouration [Unknown]

NARRATIVE: CASE EVENT DATE: 202004
